FAERS Safety Report 8216196-X (Version None)
Quarter: 2012Q1

REPORT INFORMATION
  Report Type: 
  Country: None (occurrence: None)
  Receive Date: 20120316
  Receipt Date: 20120313
  Transmission Date: 20120608
  Serious: Yes (Disabling)
  Sender: FDA-Public Use
  Company Number: NO-GLAXOSMITHKLINE-B0386399A

PATIENT
  Sex: Female

DRUGS (1)
  1. PAROXETINE HCL [Suspect]
     Indication: FIBROMYALGIA
     Dosage: 20MG PER DAY
     Route: 048
     Dates: end: 20031001

REACTIONS (15)
  - AGGRESSION [None]
  - TEMPERATURE REGULATION DISORDER [None]
  - MYALGIA [None]
  - MANIA [None]
  - SEXUAL DYSFUNCTION [None]
  - ANXIETY [None]
  - DEPRESSION [None]
  - PRURITUS [None]
  - DISTURBANCE IN ATTENTION [None]
  - TERMINAL INSOMNIA [None]
  - FATIGUE [None]
  - MYOSITIS-LIKE SYNDROME [None]
  - NIGHT SWEATS [None]
  - PARAESTHESIA [None]
  - WITHDRAWAL SYNDROME [None]
